FAERS Safety Report 18144824 (Version 1)
Quarter: 2020Q3

REPORT INFORMATION
  Report Type: Spontaneous
  Country: US (occurrence: US)
  Receive Date: 20200813
  Receipt Date: 20200813
  Transmission Date: 20201103
  Serious: Yes (Death)
  Sender: FDA-Public Use
  Company Number: None

PATIENT
  Age: 89 Year
  Sex: Female
  Weight: 58 kg

DRUGS (2)
  1. DOFETILIDE. [Suspect]
     Active Substance: DOFETILIDE
     Indication: CARDIOVERSION
     Route: 048
     Dates: start: 20200724, end: 20200726
  2. AMIODARONE [Suspect]
     Active Substance: AMIODARONE

REACTIONS (6)
  - Torsade de pointes [None]
  - Bradycardia [None]
  - Cardiac arrest [None]
  - Electrocardiogram QT prolonged [None]
  - Blood magnesium abnormal [None]
  - Pulse absent [None]

NARRATIVE: CASE EVENT DATE: 20200727
